FAERS Safety Report 5586449-2 (Version None)
Quarter: 2008Q1

REPORT INFORMATION
  Report Type: 
  Country: None (occurrence: None)
  Receive Date: 20080108
  Receipt Date: 20080108
  Transmission Date: 20080703
  Serious: Yes (Hospitalization, Disabling)
  Sender: FDA-Public Use
  Company Number: None

PATIENT
  Age: 44 Year
  Sex: Female
  Weight: 90.7194 kg

DRUGS (1)
  1. AVANDIA [Suspect]
     Indication: TYPE 2 DIABETES MELLITUS
     Dosage: 1 TABLE ONCE DAILY PO
     Route: 048
     Dates: start: 20010401, end: 20051130

REACTIONS (4)
  - BONE GRAFT [None]
  - OSTEOPOROSIS [None]
  - TIBIA FRACTURE [None]
  - WHEELCHAIR USER [None]
